FAERS Safety Report 24166611 (Version 1)
Quarter: 2024Q3

REPORT INFORMATION
  Report Type: Spontaneous
  Country: FR (occurrence: FR)
  Receive Date: 20240802
  Receipt Date: 20240802
  Transmission Date: 20241017
  Serious: Yes (Death, Other)
  Sender: RANBAXY
  Company Number: FR-AFSSAPS-NY2024000548

PATIENT
  Age: 45 Year
  Sex: Female
  Weight: 37 kg

DRUGS (7)
  1. RISPERIDONE [Suspect]
     Active Substance: RISPERIDONE
     Indication: Wrong patient received product
     Dosage: 4 MILLIGRAM
     Route: 048
     Dates: start: 20240411, end: 20240411
  2. OXAZEPAM [Suspect]
     Active Substance: OXAZEPAM
     Indication: Wrong patient received product
     Dosage: 20 MILLIGRAM
     Route: 048
     Dates: start: 20240411, end: 20240411
  3. VALPROATE SODIUM [Suspect]
     Active Substance: VALPROATE SODIUM
     Indication: Wrong patient received product
     Dosage: 1 GRAM
     Route: 048
     Dates: start: 20240411, end: 20240411
  4. TOPIRAMATE [Suspect]
     Active Substance: TOPIRAMATE
     Indication: Wrong patient received product
     Dosage: 100 MILLIGRAM
     Route: 048
     Dates: start: 20240411, end: 20240411
  5. LAMOTRIGINE [Suspect]
     Active Substance: LAMOTRIGINE
     Indication: Wrong patient received product
     Dosage: 200 MILLIGRAM
     Route: 048
     Dates: start: 20240411, end: 20240411
  6. LACTULOSE [Concomitant]
     Active Substance: LACTULOSE
     Indication: Encephalopathy
     Dosage: 1 DOSAGE FORM, DAILY
     Route: 048
  7. DIOSMIN [Concomitant]
     Active Substance: DIOSMIN
     Indication: Product used for unknown indication
     Dosage: 0-600MG-0
     Route: 048

REACTIONS (3)
  - Respiratory distress [Fatal]
  - Wrong patient received product [Fatal]
  - Cardiac arrest [Fatal]

NARRATIVE: CASE EVENT DATE: 20240411
